FAERS Safety Report 24274005 (Version 2)
Quarter: 2024Q3

REPORT INFORMATION
  Report Type: Spontaneous
  Country: JP (occurrence: None)
  Receive Date: 20240902
  Receipt Date: 20240909
  Transmission Date: 20241016
  Serious: Yes (Death)
  Sender: ASTRAZENECA
  Company Number: 2024A198016

PATIENT
  Age: 90 Year
  Sex: Male

DRUGS (4)
  1. ONDEXXYA [Suspect]
     Active Substance: ANDEXANET ALFA
     Indication: Haemorrhage intracranial
     Dosage: METHOD A: 400 MG IV AT A RATE OF 30 MG/MIN, FOLLOWED BY 480 MG IV AT A RATE OF 4 MG/MIN FOR 2 H88...
     Route: 042
     Dates: start: 20240826, end: 20240826
  2. UNSPECIFIED INGREDIENT [Concomitant]
     Active Substance: UNSPECIFIED INGREDIENT
     Indication: Atrial fibrillation
     Dosage: DOSE UNKNOWN
  3. ELIQUIS [Concomitant]
     Active Substance: APIXABAN
     Indication: Atrial fibrillation
     Dosage: DOSE UNKNOWN
     Route: 048
  4. ASPIRIN [Concomitant]
     Active Substance: ASPIRIN
     Dosage: DOSE UNKNOWN

REACTIONS (2)
  - Haemorrhage intracranial [Fatal]
  - Brain herniation [Fatal]

NARRATIVE: CASE EVENT DATE: 20240826
